FAERS Safety Report 4473918-1 (Version None)
Quarter: 2004Q4

REPORT INFORMATION
  Report Type: 
  Country: None (occurrence: None)
  Receive Date: 20041008
  Receipt Date: 20040922
  Transmission Date: 20050328
  Serious: Yes (Hospitalization)
  Sender: FDA-Public Use
  Company Number: USA040978997

PATIENT
  Sex: Male

DRUGS (3)
  1. SYMBYAX [Suspect]
  2. ZYPREXA [Suspect]
     Dosage: 5 MG/1 DAY
  3. ZOLOFT [Concomitant]

REACTIONS (1)
  - MANIA [None]
